FAERS Safety Report 11591278 (Version 1)
Quarter: 2015Q4

REPORT INFORMATION
  Report Type: Spontaneous
  Country: US (occurrence: US)
  Receive Date: 20151004
  Receipt Date: 20151004
  Transmission Date: 20160304
  Serious: No
  Sender: FDA-Public Use
  Company Number: US-APOTEX-2015AP008118

PATIENT
  Age: 52 Year
  Sex: Male

DRUGS (8)
  1. ARIPIPRAZOLE. [Concomitant]
     Active Substance: ARIPIPRAZOLE
     Indication: PRODUCT USED FOR UNKNOWN INDICATION
     Dosage: 30 MG, QD
     Route: 065
  2. RISPERIDONE. [Concomitant]
     Active Substance: RISPERIDONE
     Indication: PSYCHOTIC DISORDER
     Dosage: 1 MG, BID
     Route: 065
  3. QUETIAPINE [Concomitant]
     Active Substance: QUETIAPINE
     Indication: PSYCHOTIC DISORDER
     Dosage: 400 MG, Q.H.S.
     Route: 065
  4. DIPHENHYDRAMINE. [Concomitant]
     Active Substance: DIPHENHYDRAMINE
     Indication: INSOMNIA
     Dosage: 50 MG, Q.H.S.
     Route: 065
  5. ISONIAZID. [Concomitant]
     Active Substance: ISONIAZID
     Indication: TUBERCULOSIS
     Dosage: DAILY
     Route: 065
  6. PYRIDOXINE [Concomitant]
     Active Substance: PYRIDOXINE
     Indication: TUBERCULOSIS
     Route: 065
  7. ZOLPIDEM [Concomitant]
     Active Substance: ZOLPIDEM\ZOLPIDEM TARTRATE
     Indication: INSOMNIA
     Dosage: NIGHTLY
     Route: 065
  8. LACTULOSE SOLUTION USP [Suspect]
     Active Substance: LACTULOSE
     Indication: HEPATIC ENCEPHALOPATHY PROPHYLAXIS
     Route: 065

REACTIONS (4)
  - Defaecation urgency [Unknown]
  - Diarrhoea [Unknown]
  - Off label use [Unknown]
  - Abdominal discomfort [Unknown]
